FAERS Safety Report 20422764 (Version 2)
Quarter: 2022Q3

REPORT INFORMATION
  Report Type: Spontaneous
  Country: US (occurrence: US)
  Receive Date: 20220203
  Receipt Date: 20220811
  Transmission Date: 20221027
  Serious: No
  Sender: FDA-Public Use
  Company Number: US-AURINIA PHARMACEUTICALS INC.-AUR-000858

PATIENT
  Age: 27 Year
  Sex: Female

DRUGS (2)
  1. LUPKYNIS [Suspect]
     Active Substance: VOCLOSPORIN
     Indication: Lupus nephritis
     Dosage: 23.7 MILLIGRAM, BID
     Dates: start: 20220111
  2. LUPKYNIS [Suspect]
     Active Substance: VOCLOSPORIN
     Dosage: 23.7 MILLIGRAM, BID
     Route: 048
     Dates: start: 20211123

REACTIONS (7)
  - Malaise [Unknown]
  - Dysphagia [Unknown]
  - Nausea [Unknown]
  - Headache [Not Recovered/Not Resolved]
  - Abdominal pain upper [Unknown]
  - Product odour abnormal [Unknown]
  - Product taste abnormal [Unknown]

NARRATIVE: CASE EVENT DATE: 20220111
